FAERS Safety Report 4618419-2 (Version None)
Quarter: 2005Q1

REPORT INFORMATION
  Report Type: 
  Country: None (occurrence: None)
  Receive Date: 20050323
  Receipt Date: 20050311
  Transmission Date: 20050727
  Serious: Yes (Hospitalization)
  Sender: FDA-Public Use
  Company Number: RENA-11249

PATIENT
  Age: 78 Year
  Sex: Female

DRUGS (8)
  1. PHOSBLOCK - 250 MG TABLET [Suspect]
     Indication: HYPERPHOSPHATAEMIA
     Dosage: 0.5 G TID PO
     Route: 048
     Dates: start: 20040615, end: 20040907
  2. PHOSBLOCK - 250 MG TABLET [Suspect]
     Indication: HYPERPHOSPHATAEMIA
     Dosage: 0.75 G TID PO
     Route: 048
     Dates: start: 20040907, end: 20040921
  3. PHOSBLOCK - 250 MG TABLET [Suspect]
     Indication: HYPERPHOSPHATAEMIA
     Dosage: 1 G TID PO
     Route: 048
     Dates: start: 20040921, end: 20041221
  4. SENNOSIDE [Concomitant]
  5. SODIUM AZULENE SULFONATE [Concomitant]
  6. CALCIUM POLYSTYRENE SULFONATE [Concomitant]
  7. FAMOTIDINE [Concomitant]
  8. AMLODIPINE [Concomitant]

REACTIONS (1)
  - ANAEMIA [None]
